FAERS Safety Report 4614383-0 (Version None)
Quarter: 2005Q2

REPORT INFORMATION
  Report Type: 
  Country: None (occurrence: None)
  Receive Date: 20050311
  Receipt Date: 20041112
  Transmission Date: 20051028
  Serious: No
  Sender: FDA-Public Use
  Company Number: 2004-BP-11821BP

PATIENT
  Age: 80 Year
  Sex: Male

DRUGS (6)
  1. SPIRIVA [Suspect]
     Indication: CHRONIC OBSTRUCTIVE PULMONARY DISEASE
     Dosage: 18 MCG (18 MCG, 1 IN 1 D), IH
     Route: 055
     Dates: start: 20040901
  2. SEREVENT [Concomitant]
  3. ALBUTEROL [Concomitant]
  4. BECONASE (BECLOMETASONE DIPROPIONATE) [Concomitant]
  5. DURATUSS (RESPAIRE-SR-120) [Concomitant]
  6. ALLEGRA [Concomitant]

REACTIONS (2)
  - TONGUE COATED [None]
  - TONGUE DISORDER [None]
